FAERS Safety Report 11090085 (Version 3)
Quarter: 2015Q2

REPORT INFORMATION
  Report Type: Report from Study
  Country: CA (occurrence: None)
  Receive Date: 20150501
  Receipt Date: 20150528
  Transmission Date: 20150821
  Serious: Yes (Hospitalization)
  Sender: FDA-Public Use
  Company Number: 2015SGN00638

PATIENT
  Age: 27 Year
  Sex: Female
  Weight: 67 kg

DRUGS (18)
  1. NYSTATIN. [Concomitant]
     Active Substance: NYSTATIN
  2. PARIET (RABEPRAZOLE SODIUM) (20 MG, GASTRO-RESISTANT TABLET) (RABEPRAZOLE SODIUM) [Concomitant]
     Active Substance: RABEPRAZOLE SODIUM
  3. GRANULOCYTE COLONY-STIMULATING FACTOR NOS [Concomitant]
     Active Substance: GRANULOCYTE COLONY-STIMULATING FACTOR NOS
  4. ATIVAN [Concomitant]
     Active Substance: LORAZEPAM
  5. MAXERAN (METOCLOPRAMIDE HYDROCHLORIDE) [Concomitant]
  6. DILAUDID [Concomitant]
     Active Substance: HYDROMORPHONE HYDROCHLORIDE
  7. METRONIDAZOLE. [Concomitant]
     Active Substance: METRONIDAZOLE
  8. ONDANSETRON [Concomitant]
     Active Substance: ONDANSETRON
  9. VINBLASTINE (VINBLASTINE) INJECTION [Suspect]
     Active Substance: VINBLASTINE
     Indication: HODGKIN^S DISEASE
     Route: 042
     Dates: start: 20150310, end: 20150408
  10. TYLENOL [Concomitant]
     Active Substance: ACETAMINOPHEN
  11. CEFTAZIDIME. [Concomitant]
     Active Substance: CEFTAZIDIME
  12. TINZAPARIN [Concomitant]
     Active Substance: TINZAPARIN
  13. BRENTUXIMAB VEDOTIN [Suspect]
     Active Substance: BRENTUXIMAB VEDOTIN
     Indication: HODGKIN^S DISEASE
     Route: 042
     Dates: start: 20150310, end: 20150408
  14. MIRVALA (DESOGESTREL, ETHINYLESTRADIOL) [Concomitant]
  15. DOXORUBICIN (DOXORUBICIN) INJECTION [Suspect]
     Active Substance: DOXORUBICIN
     Indication: HODGKIN^S DISEASE
     Route: 042
     Dates: start: 20150310, end: 20150408
  16. DACARBAZINE (DACARBAZINE) INJECTION [Suspect]
     Active Substance: DACARBAZINE
     Indication: HODGKIN^S DISEASE
     Route: 042
     Dates: start: 20150310, end: 20150408
  17. GRAVOL (DIMENHYDRINATE) [Concomitant]
  18. URSODIOL (URSODEOXYCHOLIC ACID) [Concomitant]

REACTIONS (9)
  - Nausea [None]
  - Diarrhoea [None]
  - Abdominal pain upper [None]
  - Colitis [None]
  - Febrile neutropenia [None]
  - Malaise [None]
  - Chest discomfort [None]
  - Constipation [None]
  - Haemoglobin decreased [None]

NARRATIVE: CASE EVENT DATE: 20150414
